FAERS Safety Report 7879413-1 (Version None)
Quarter: 2011Q4

REPORT INFORMATION
  Report Type: 
  Country: None (occurrence: None)
  Receive Date: 20111101
  Receipt Date: 20111026
  Transmission Date: 20120403
  Serious: Yes (Other)
  Sender: FDA-Public Use
  Company Number: US-PFIZER INC-2011262666

PATIENT
  Sex: Male
  Weight: 87.528 kg

DRUGS (1)
  1. VIAGRA [Suspect]
     Dosage: UNK, AS NEEDED
     Dates: start: 20111009, end: 20111001

REACTIONS (1)
  - TESTICULAR DISORDER [None]
